FAERS Safety Report 9937000 (Version 1)
Quarter: 2014Q1

REPORT INFORMATION
  Report Type: Spontaneous
  Country: US (occurrence: None)
  Receive Date: 20140122
  Receipt Date: 20140122
  Transmission Date: 20141002
  Serious: No
  Sender: FDA-Public Use
  Company Number: AP356-00186-SPO-US

PATIENT
  Age: 59 Year
  Sex: Female
  Weight: 93.64 kg

DRUGS (2)
  1. BELVIQ (LORCASERIN HYDROCHLORIDE) [Suspect]
     Indication: WEIGHT DECREASED
     Route: 048
     Dates: start: 20131021, end: 2013
  2. SSRI (SSRI) [Suspect]

REACTIONS (9)
  - Fatigue [None]
  - Pain [None]
  - Hypersomnia [None]
  - Disturbance in attention [None]
  - Cognitive disorder [None]
  - Dizziness [None]
  - Nausea [None]
  - Muscle spasms [None]
  - Drug interaction [None]
